FAERS Safety Report 5273888-2 (Version None)
Quarter: 2007Q1

REPORT INFORMATION
  Report Type: 
  Country: None (occurrence: None)
  Receive Date: 20070323
  Receipt Date: 20070313
  Transmission Date: 20070707
  Serious: Yes (Other)
  Sender: FDA-Public Use
  Company Number: JP-ABBOTT-07P-087-0361748-00

PATIENT
  Age: 64 Year
  Sex: Male

DRUGS (2)
  1. TRICOR [Suspect]
     Indication: HYPERLIPIDAEMIA
     Route: 048
     Dates: start: 20060622, end: 20060626
  2. PROBUCOL [Concomitant]
     Indication: DRUG USE FOR UNKNOWN INDICATION
     Dates: start: 20050120

REACTIONS (4)
  - CRYING [None]
  - HALLUCINATION [None]
  - HYPOGLYCAEMIA [None]
  - PYREXIA [None]
